FAERS Safety Report 5793824-X (Version None)
Quarter: 2008Q2

REPORT INFORMATION
  Report Type: 
  Country: None (occurrence: None)
  Receive Date: 20080627
  Receipt Date: 20080617
  Transmission Date: 20081010
  Serious: Yes (Hospitalization)
  Sender: FDA-Public Use
  Company Number: DE-PFIZER INC-2008051089

PATIENT
  Sex: Male

DRUGS (17)
  1. XALATAN [Suspect]
     Indication: INTRAOCULAR PRESSURE INCREASED
     Route: 047
  2. TIM-OPHTAL [Suspect]
     Route: 047
  3. DEXAMETHASONE SODIUM PHOSPHATE [Suspect]
     Route: 047
  4. ACTIHAEMYL [Concomitant]
     Route: 047
  5. KANAMYTREX [Concomitant]
     Route: 047
  6. ACIC-OPHTAL [Concomitant]
     Route: 047
  7. BORO-SCOPOL [Concomitant]
     Route: 047
  8. CORNEREGEL [Concomitant]
     Route: 047
  9. KANAMYTREX [Concomitant]
     Route: 047
  10. OFLOXACIN [Concomitant]
     Route: 047
  11. TOBRAMAXIN [Concomitant]
     Route: 047
  12. FLOXAL EYEDROPS [Concomitant]
     Route: 047
  13. ALL OTHER THERAPEUTIC PRODUCTS [Concomitant]
     Route: 047
  14. TOBRAMAXIN [Concomitant]
     Route: 047
  15. TOBRADEX [Concomitant]
     Route: 047
  16. ALL OTHER THERAPEUTIC PRODUCTS [Concomitant]
     Route: 047
  17. OFLOXACIN [Concomitant]
     Route: 047
     Dates: start: 20080101

REACTIONS (1)
  - CORNEAL DEPOSITS [None]
